FAERS Safety Report 7505921-9 (Version None)
Quarter: 2011Q2

REPORT INFORMATION
  Report Type: 
  Country: None (occurrence: None)
  Receive Date: 20110526
  Receipt Date: 20110524
  Transmission Date: 20111010
  Serious: Yes (Hospitalization, Disabling)
  Sender: FDA-Public Use
  Company Number: IN-AMGEN-INDCT2011024802

PATIENT
  Age: 35 Year
  Sex: Female
  Weight: 44 kg

DRUGS (5)
  1. PERINORM [Concomitant]
     Indication: VOMITING
     Dosage: UNK
     Route: 042
     Dates: start: 20110313, end: 20110318
  2. RANTAC [Concomitant]
     Indication: HYPERCHLORHYDRIA
     Dosage: UNK
     Route: 042
     Dates: start: 20110317, end: 20110318
  3. RABEPRAZOLE SODIUM [Concomitant]
     Indication: HYPERCHLORHYDRIA
     Dosage: UNK
     Route: 048
     Dates: start: 20110303
  4. PANITUMUMAB [Suspect]
     Indication: COLORECTAL CANCER
     Dosage: 240 MG, UNK
     Dates: start: 20110303, end: 20110429
  5. DOMSTAL [Concomitant]
     Indication: VOMITING
     Dosage: UNK
     Route: 048
     Dates: start: 20110303

REACTIONS (1)
  - INTESTINAL OBSTRUCTION [None]
